FAERS Safety Report 15191777 (Version 1)
Quarter: 2018Q3

REPORT INFORMATION
  Report Type: Spontaneous
  Country: DE (occurrence: DE)
  Receive Date: 20180724
  Receipt Date: 20180724
  Transmission Date: 20181010
  Serious: Yes (Other)
  Sender: FDA-Public Use
  Company Number: PHHY2013DE176432

PATIENT
  Age: 63 Year
  Sex: Female
  Weight: 68 kg

DRUGS (12)
  1. OXALIPLATIN. [Suspect]
     Active Substance: OXALIPLATIN
     Indication: COLORECTAL CANCER METASTATIC
     Dosage: 1 DF, QW (116.96 ? 147.05 MG)
     Route: 042
     Dates: start: 20130102, end: 20130409
  2. BEVACIZUMAB. [Suspect]
     Active Substance: BEVACIZUMAB
     Indication: COLORECTAL CANCER METASTATIC
     Dosage: 680 MG, QW
     Route: 042
     Dates: start: 20130102, end: 20131106
  3. CAPECITABINE. [Suspect]
     Active Substance: CAPECITABINE
     Indication: COLORECTAL CANCER METASTATIC
     Dosage: 2150 MG, QW (DOSE: 1650?2150 MG)
     Route: 065
     Dates: start: 20130423
  4. BEVACIZUMAB. [Suspect]
     Active Substance: BEVACIZUMAB
     Dosage: 335 MG, BIW
     Route: 042
     Dates: start: 20130522
  5. CAPECITABINE. [Suspect]
     Active Substance: CAPECITABINE
     Dosage: 2150 MG, QW (DOSE: 1650?2150 MG)
     Route: 065
     Dates: start: 20130618
  6. FOLINIC ACID [Suspect]
     Active Substance: LEUCOVORIN
     Indication: COLORECTAL CANCER METASTATIC
     Dosage: 1 UNK, QW (275.2?346 MG)
     Route: 042
     Dates: start: 20130102, end: 20130410
  7. METAMIZOL [Concomitant]
     Active Substance: METAMIZOLE SODIUM
     Indication: PAIN
     Route: 048
  8. 5?FLUOROURACIL [Suspect]
     Active Substance: FLUOROURACIL
     Indication: COLORECTAL CANCER METASTATIC
     Dosage: 1 DF, QW (1651.2 ? 2076 MG)
     Route: 041
     Dates: start: 20130102, end: 20130410
  9. 5?FLUOROURACIL [Suspect]
     Active Substance: FLUOROURACIL
     Indication: COLORECTAL CANCER METASTATIC
     Dosage: 1 OT, QW (550.4?692 MG)
     Route: 040
     Dates: start: 20130102, end: 20130410
  10. CAPECITABINE. [Suspect]
     Active Substance: CAPECITABINE
     Dosage: 2150 MG, QW
     Route: 065
     Dates: start: 20130515
  11. PANTOPRAZOL [Concomitant]
     Active Substance: PANTOPRAZOLE SODIUM
     Indication: GASTRITIS
     Dosage: 80 MG, QD
     Route: 048
     Dates: start: 20130513, end: 20140627
  12. METOCLOPRAMID [Concomitant]
     Active Substance: METOCLOPRAMIDE
     Indication: PAIN
     Dosage: UNK
     Route: 048

REACTIONS (8)
  - Neuropathy peripheral [Recovered/Resolved]
  - Thrombocytopenia [Recovered/Resolved]
  - Thrombocytopenia [Recovered/Resolved]
  - Palmar-plantar erythrodysaesthesia syndrome [Recovered/Resolved]
  - Leukopenia [Recovered/Resolved]
  - Nausea [Recovered/Resolved]
  - Anaemia [Recovered/Resolved]
  - Leukopenia [Recovered/Resolved]

NARRATIVE: CASE EVENT DATE: 20130326
